FAERS Safety Report 20422111 (Version 1)
Quarter: 2022Q1

REPORT INFORMATION
  Report Type: Report from Study
  Country: FR (occurrence: FR)
  Receive Date: 20220203
  Receipt Date: 20220203
  Transmission Date: 20220424
  Serious: Yes (Death, Other)
  Sender: FDA-Public Use
  Company Number: FR-KYOWAKIRIN-2022BKK000966

PATIENT

DRUGS (2)
  1. POTELIGEO [Suspect]
     Active Substance: MOGAMULIZUMAB-KPKC
     Indication: Cutaneous T-cell lymphoma recurrent
     Dosage: 1 MG/KG, EVERY WEEK,IN THE FIRST MONTH
     Route: 042
  2. POTELIGEO [Suspect]
     Active Substance: MOGAMULIZUMAB-KPKC
     Indication: Cutaneous T-cell lymphoma refractory
     Dosage: 1 MG/KG, EVERY TWO WEEKS
     Route: 042

REACTIONS (7)
  - Infection [Fatal]
  - Autoimmune disorder [Unknown]
  - Cutaneous T-cell lymphoma [Unknown]
  - Disease progression [Unknown]
  - Rash [Unknown]
  - Adverse event [Unknown]
  - Therapy non-responder [Unknown]
